FAERS Safety Report 9698044 (Version 1)
Quarter: 2013Q4

REPORT INFORMATION
  Report Type: Spontaneous
  Country: TR (occurrence: None)
  Receive Date: 20131112
  Receipt Date: 20131112
  Transmission Date: 20140711
  Serious: No
  Sender: FDA-Public Use
  Company Number: TR-145487

PATIENT
  Age: 6 Year
  Sex: Male

DRUGS (1)
  1. WINRHO [Suspect]
     Indication: IMMUNE THROMBOCYTOPENIC PURPURA
     Route: 042

REACTIONS (1)
  - Haemolysis [None]
